FAERS Safety Report 22807933 (Version 3)
Quarter: 2024Q4

REPORT INFORMATION
  Report Type: Spontaneous
  Country: US (occurrence: US)
  Receive Date: 20230810
  Receipt Date: 20241216
  Transmission Date: 20250114
  Serious: No
  Sender: SANOFI AVENTIS
  Company Number: US-SA-SAC20230808000651

PATIENT
  Age: 61 Year
  Sex: Male
  Weight: 115.65 kg

DRUGS (1)
  1. DUPIXENT [Suspect]
     Active Substance: DUPILUMAB
     Indication: Asthma
     Dosage: 300 MG, QOW
     Route: 058

REACTIONS (4)
  - Dyspnoea [Unknown]
  - Condition aggravated [Unknown]
  - Upper respiratory tract infection [Unknown]
  - Asthma [Unknown]

NARRATIVE: CASE EVENT DATE: 20240829
